FAERS Safety Report 5369374-1 (Version None)
Quarter: 2007Q2

REPORT INFORMATION
  Report Type: 
  Country: None (occurrence: None)
  Receive Date: 20070625
  Receipt Date: 20070621
  Transmission Date: 20071010
  Serious: Yes (Other)
  Sender: FDA-Public Use
  Company Number: JP-BRISTOL-MYERS SQUIBB COMPANY-13785522

PATIENT
  Age: 21 Year
  Sex: Male

DRUGS (7)
  1. VEPESID [Suspect]
     Indication: BURKITT'S LYMPHOMA
     Route: 041
  2. ENDOXAN [Suspect]
     Indication: BURKITT'S LYMPHOMA
     Route: 042
  3. METHOTREXATE [Suspect]
     Indication: BURKITT'S LYMPHOMA
  4. IFOMIDE [Suspect]
     Indication: BURKITT'S LYMPHOMA
     Route: 042
  5. VINCRISTINE SULFATE [Suspect]
     Indication: BURKITT'S LYMPHOMA
     Route: 042
  6. DOXORUBICIN HCL [Suspect]
     Indication: BURKITT'S LYMPHOMA
     Route: 042
  7. CYTARABINE [Suspect]
     Indication: BURKITT'S LYMPHOMA
     Route: 042

REACTIONS (1)
  - TUMOUR LYSIS SYNDROME [None]
